FAERS Safety Report 8947410 (Version 2)
Quarter: 2013Q2

REPORT INFORMATION
  Report Type: Spontaneous
  Country: US (occurrence: US)
  Receive Date: 20121205
  Receipt Date: 20130524
  Transmission Date: 20140414
  Serious: Yes (Other)
  Sender: FDA-Public Use
  Company Number: US-PFIZER INC-2012305643

PATIENT
  Sex: Female

DRUGS (2)
  1. LYRICA [Suspect]
     Dosage: 300 MG
  2. PRISTIQ [Suspect]
     Dosage: 100 MG

REACTIONS (4)
  - Fibromyalgia [Unknown]
  - Pain [Unknown]
  - Laryngitis [Unknown]
  - Aphonia [Unknown]
